FAERS Safety Report 4343591-1 (Version None)
Quarter: 2004Q2

REPORT INFORMATION
  Report Type: 
  Country: None (occurrence: None)
  Receive Date: 20040419
  Receipt Date: 20040409
  Transmission Date: 20050107
  Serious: Yes (Death)
  Sender: FDA-Public Use
  Company Number: US072170

PATIENT
  Age: 76 Year
  Sex: Male

DRUGS (6)
  1. NEULASTA [Suspect]
     Indication: CHEMOTHERAPY
     Dosage: 6 MG, SC
     Route: 058
     Dates: start: 20040102, end: 20040102
  2. CISPLATIN [Concomitant]
  3. ETOPOSIDE [Concomitant]
  4. TERAZOSIN HCL [Concomitant]
  5. SIMVASTATIN [Concomitant]
  6. ACETAMINOPHEN [Concomitant]

REACTIONS (3)
  - ASTHENIA [None]
  - MYOCARDIAL INFARCTION [None]
  - URINARY INCONTINENCE [None]
